FAERS Safety Report 16049270 (Version 1)
Quarter: 2019Q1

REPORT INFORMATION
  Report Type: Spontaneous
  Country: NL (occurrence: NL)
  Receive Date: 20190307
  Receipt Date: 20190307
  Transmission Date: 20190418
  Serious: Yes (Other)
  Sender: FDA-Public Use
  Company Number: NL-MYLANLABS-2019M1020500

PATIENT
  Sex: Female

DRUGS (1)
  1. CARBIDOPA,LEVODOPA MYLAN [Suspect]
     Active Substance: CARBIDOPA\LEVODOPA
     Indication: PARKINSON^S DISEASE
     Route: 065

REACTIONS (7)
  - Speech disorder [Unknown]
  - Hallucination [Unknown]
  - Depression [Unknown]
  - Therapeutic response decreased [Unknown]
  - General physical condition abnormal [Unknown]
  - Dysphagia [Unknown]
  - Deep brain stimulation [Unknown]
